FAERS Safety Report 9767523 (Version 1)
Quarter: 2013Q4

REPORT INFORMATION
  Report Type: Spontaneous
  Country: US (occurrence: US)
  Receive Date: 20131217
  Receipt Date: 20131217
  Transmission Date: 20140711
  Serious: No
  Sender: FDA-Public Use
  Company Number: US-GILEAD-2009-0022480

PATIENT
  Age: 47 Year
  Sex: Male

DRUGS (11)
  1. VIREAD [Suspect]
     Indication: HIV INFECTION
     Dates: start: 200803
  2. VIREAD [Suspect]
     Dates: end: 200711
  3. PREZISTA [Concomitant]
     Indication: HIV INFECTION
     Route: 048
     Dates: start: 200711, end: 200803
  4. PREZISTA [Concomitant]
     Dates: start: 200803
  5. INTELENCE [Concomitant]
     Indication: HIV INFECTION
     Dates: start: 200803
  6. INTELENCE [Concomitant]
     Dates: end: 200711
  7. TRIZIVIR [Concomitant]
     Indication: HIV INFECTION
     Dates: start: 200711
  8. NORVIR [Concomitant]
     Indication: HIV INFECTION
     Dates: start: 200803
  9. NORVIR [Concomitant]
     Dates: end: 200711
  10. ISENTRESS [Concomitant]
     Indication: HIV INFECTION
     Dates: start: 200803
  11. ISENTRESS [Concomitant]
     Dates: end: 200711

REACTIONS (1)
  - Adverse drug reaction [Unknown]
